FAERS Safety Report 5406806-4 (Version None)
Quarter: 2007Q3

REPORT INFORMATION
  Report Type: 
  Country: None (occurrence: None)
  Receive Date: 20070802
  Receipt Date: 20070717
  Transmission Date: 20080115
  Serious: Yes (Death)
  Sender: FDA-Public Use
  Company Number: 000#5#2007-00220

PATIENT
  Sex: Male

DRUGS (5)
  1. ROTIGOTINE (DOSE UNKNOWN), PATCH (SILICONE) (ROTIGOTINE) [Suspect]
     Indication: PARKINSON'S DISEASE
     Dosage: TRANSDERMAL
     Route: 062
  2. CANDESARTAN CILEXETIL (CANDESARTAN CILEXETIL) [Concomitant]
  3. PHENOXYMETHYL PENICILLIN [Concomitant]
  4. ISOSORBIDE MONONITRATE [Concomitant]
  5. ASPIRIN [Concomitant]

REACTIONS (2)
  - CARDIAC DISORDER [None]
  - MYOCARDIAL INFARCTION [None]
